FAERS Safety Report 8553107-1 (Version None)
Quarter: 2012Q3

REPORT INFORMATION
  Report Type: 
  Country: None (occurrence: None)
  Receive Date: 20120724
  Receipt Date: 20120724
  Transmission Date: 20120928
  Serious: No
  Sender: FDA-Public Use
  Company Number: None

PATIENT
  Sex: Female
  Weight: 111.5849 kg

DRUGS (1)
  1. PROLIA [Suspect]
     Indication: OSTEOPOROSIS
     Dosage: 60 MG/ML SC
     Route: 058
     Dates: start: 20110820, end: 20120320

REACTIONS (3)
  - TACHYCARDIA [None]
  - PULMONARY HYPERTENSION [None]
  - HYPERTENSION [None]
